FAERS Safety Report 4329531-X (Version None)
Quarter: 2004Q1

REPORT INFORMATION
  Report Type: 
  Country: None (occurrence: None)
  Receive Date: 20040311
  Receipt Date: 20040116
  Transmission Date: 20041129
  Serious: No
  Sender: FDA-Public Use
  Company Number: US-JNJFOC-20040103925

PATIENT
  Age: 33 Year
  Sex: Female
  Weight: 86.1834 kg

DRUGS (2)
  1. ORTHO EVRA [Suspect]
     Indication: CONTRACEPTION
     Dosage: 1 DOSE(S), 3 IN 4 WEEKS, TRANSDERMAL
     Route: 062
     Dates: start: 20040103
  2. EFFEXOR [Concomitant]

REACTIONS (4)
  - BREAST TENDERNESS [None]
  - MENSTRUATION IRREGULAR [None]
  - NAUSEA [None]
  - RASH [None]
